FAERS Safety Report 18309750 (Version 1)
Quarter: 2020Q3

REPORT INFORMATION
  Report Type: Spontaneous
  Country: US (occurrence: US)
  Receive Date: 20200924
  Receipt Date: 20200924
  Transmission Date: 20201103
  Serious: No
  Sender: FDA-Public Use
  Company Number: NVSC2020US260348

PATIENT
  Sex: Female

DRUGS (3)
  1. CAPMATINIB [Suspect]
     Active Substance: CAPMATINIB
     Dosage: 300 MG, BID
     Route: 048
  2. CAPMATINIB [Suspect]
     Active Substance: CAPMATINIB
     Dosage: 200 MG, BID
     Route: 048
  3. CAPMATINIB [Suspect]
     Active Substance: CAPMATINIB
     Indication: METASTATIC NEOPLASM
     Dosage: 400 MG, BID
     Route: 048

REACTIONS (1)
  - Rash [Recovered/Resolved with Sequelae]
